FAERS Safety Report 15709259 (Version 1)
Quarter: 2018Q4

REPORT INFORMATION
  Report Type: Spontaneous
  Country: US (occurrence: US)
  Receive Date: 20181211
  Receipt Date: 20181211
  Transmission Date: 20190205
  Serious: No
  Sender: FDA-Public Use
  Company Number: US-APOTEX-2018AP016297

PATIENT
  Sex: Male

DRUGS (2)
  1. NICOTINE. [Suspect]
     Active Substance: NICOTINE
     Indication: SMOKING CESSATION THERAPY
     Dosage: 7 MG, UNK
     Route: 062
     Dates: start: 20180530
  2. NICOTINE. [Suspect]
     Active Substance: NICOTINE
     Dosage: 14 MG, UNK
     Route: 062
     Dates: start: 20180612

REACTIONS (2)
  - Product quality issue [Unknown]
  - Drug hypersensitivity [Unknown]

NARRATIVE: CASE EVENT DATE: 20180612
